FAERS Safety Report 9094524 (Version 1)
Quarter: 2013Q1

REPORT INFORMATION
  Report Type: Spontaneous
  Country: US (occurrence: US)
  Receive Date: 20130220
  Receipt Date: 20130220
  Transmission Date: 20140127
  Serious: No
  Sender: FDA-Public Use
  Company Number: US-009507513-1302USA007542

PATIENT
  Age: 78 Year
  Sex: Female

DRUGS (10)
  1. DULERA [Suspect]
     Dosage: UNK
     Dates: start: 20130202
  2. VILAZODONE [Suspect]
     Indication: DEPRESSION
     Dosage: 10 MG, QD
     Route: 048
     Dates: start: 20130202
  3. SYNTHROID [Concomitant]
     Indication: HYPOTHYROIDISM
     Dosage: UNK
  4. TWYNSTA [Concomitant]
     Indication: HYPERTENSION
     Dosage: UNK
  5. CRESTOR [Concomitant]
     Dosage: UNK
  6. NOVOLOG [Concomitant]
     Indication: DIABETES MELLITUS
     Dosage: UNK
  7. LEVEMIR [Concomitant]
     Indication: DIABETES MELLITUS
     Dosage: UNK
  8. METFORMIN [Concomitant]
     Indication: DIABETES MELLITUS
     Dosage: UNK
  9. CETRIZIN (CETIRIZINE HYDROCHLORIDE) [Concomitant]
     Dosage: UNK
  10. MELOXICAM [Concomitant]
     Indication: ARTHRITIS
     Dosage: UNK

REACTIONS (1)
  - Insomnia [Not Recovered/Not Resolved]
